APPROVED DRUG PRODUCT: NITRO IV
Active Ingredient: NITROGLYCERIN
Strength: 5MG/ML
Dosage Form/Route: INJECTABLE;INJECTION
Application: N018672 | Product #002
Applicant: G POHL BOSKAMP GMBH AND CO
Approved: Aug 30, 1983 | RLD: No | RS: No | Type: DISCN